FAERS Safety Report 17544559 (Version 1)
Quarter: 2020Q1

REPORT INFORMATION
  Report Type: Spontaneous
  Country: FR (occurrence: FR)
  Receive Date: 20200316
  Receipt Date: 20200316
  Transmission Date: 20200409
  Serious: Yes (Other)
  Sender: FDA-Public Use
  Company Number: FR-PFIZER INC-2020107233

PATIENT
  Age: 31 Year
  Sex: Male

DRUGS (3)
  1. CARBAMAZEPINE. [Suspect]
     Active Substance: CARBAMAZEPINE
     Dosage: 2800 MG, SINGLE
     Route: 048
     Dates: start: 20200114, end: 20200115
  2. XANAX [Suspect]
     Active Substance: ALPRAZOLAM
     Indication: DEPRESSION
     Dosage: 0.25 MG, 1X/DAY
     Route: 048
     Dates: start: 20200114, end: 20200114
  3. TRAMADOL. [Suspect]
     Active Substance: TRAMADOL
     Dosage: UNK (12 TABLETS)
     Route: 048
     Dates: start: 201910, end: 202001

REACTIONS (2)
  - Vertigo [Recovered/Resolved]
  - Drug abuse [Recovered/Resolved]

NARRATIVE: CASE EVENT DATE: 201910
